FAERS Safety Report 17408119 (Version 4)
Quarter: 2020Q2

REPORT INFORMATION
  Report Type: Report from Study
  Country: US (occurrence: US)
  Receive Date: 20200212
  Receipt Date: 20200521
  Transmission Date: 20200713
  Serious: Yes (Hospitalization)
  Sender: FDA-Public Use
  Company Number: NVSC2020US032581

PATIENT
  Age: 70 Year
  Sex: Male
  Weight: 113.2 kg

DRUGS (5)
  1. TRAMETINIB [Suspect]
     Active Substance: TRAMETINIB
     Indication: MALIGNANT MELANOMA
     Dosage: 2 MG, QD
     Route: 048
     Dates: start: 20200102, end: 20200112
  2. NAVITOCLAX [Suspect]
     Active Substance: NAVITOCLAX
     Indication: MALIGNANT MELANOMA
     Dosage: 225 MG, QD
     Route: 048
     Dates: start: 20200102, end: 20200112
  3. GSK2118436 [Suspect]
     Active Substance: DABRAFENIB
     Dosage: UNK
     Route: 048
     Dates: start: 20200130
  4. TRAMETINIB [Suspect]
     Active Substance: TRAMETINIB
     Dosage: UNK
     Route: 048
     Dates: start: 20200130
  5. GSK2118436 [Suspect]
     Active Substance: DABRAFENIB
     Indication: MALIGNANT MELANOMA
     Dosage: 140 MG, BID
     Route: 048
     Dates: start: 20200102, end: 20200112

REACTIONS (3)
  - Syncope [Recovered/Resolved with Sequelae]
  - Dehydration [Recovered/Resolved]
  - Diarrhoea [Recovered/Resolved]

NARRATIVE: CASE EVENT DATE: 20200112
